FAERS Safety Report 6164851-8 (Version None)
Quarter: 2009Q2

REPORT INFORMATION
  Report Type: 
  Country: None (occurrence: None)
  Receive Date: 20090423
  Receipt Date: 20080421
  Transmission Date: 20091009
  Serious: No
  Sender: FDA-Public Use
  Company Number: A0723883A

PATIENT
  Age: 81 Year
  Sex: Female

DRUGS (2)
  1. LEUKERAN [Suspect]
     Indication: DRUG USE FOR UNKNOWN INDICATION
     Dosage: 4TAB PER DAY
     Route: 048
     Dates: start: 20080303
  2. NO CONCURRENT MEDICATION [Concomitant]

REACTIONS (2)
  - DRUG ADMINISTRATION ERROR [None]
  - MEDICATION ERROR [None]
